FAERS Safety Report 21838674 (Version 2)
Quarter: 2023Q1

REPORT INFORMATION
  Report Type: Spontaneous
  Country: US (occurrence: US)
  Receive Date: 20230109
  Receipt Date: 20230110
  Transmission Date: 20230418
  Serious: No
  Sender: FDA-Public Use
  Company Number: US-PFIZER INC-PV202300003994

PATIENT
  Age: 51 Year
  Sex: Female

DRUGS (1)
  1. IBRANCE [Suspect]
     Active Substance: PALBOCICLIB
     Dosage: UNK (AS RECOMMENDED)
     Route: 048
     Dates: start: 201702, end: 202001

REACTIONS (2)
  - Neoplasm progression [Recovered/Resolved]
  - Alopecia [Recovered/Resolved]
